FAERS Safety Report 9431575 (Version 2)
Quarter: 2013Q3

REPORT INFORMATION
  Report Type: Spontaneous
  Country: US (occurrence: US)
  Receive Date: 20130731
  Receipt Date: 20130822
  Transmission Date: 20140515
  Serious: Yes (Death, Other)
  Sender: FDA-Public Use
  Company Number: US-AMGEN-USASP2013053064

PATIENT
  Age: 75 Year
  Sex: Female

DRUGS (14)
  1. PROCRIT [Suspect]
     Indication: MYELODYSPLASTIC SYNDROME
     Dosage: 60000 UNIT, Q2WK
     Route: 058
     Dates: start: 20110720, end: 20130206
  2. PROCRIT [Suspect]
     Indication: MYELOPROLIFERATIVE DISORDER
  3. TYLENOL                            /00020001/ [Concomitant]
     Dosage: UNK UNK, AS NECESSARY
  4. BENADRYL                           /00000402/ [Concomitant]
     Dosage: UNK UNK, AS NECESSARY
  5. MUCINEX [Concomitant]
     Dosage: UNK UNK, AS NECESSARY
  6. CLARITIN                           /00413701/ [Concomitant]
     Dosage: 10 MG, QD AS NESSESARY
  7. VITAMIN D                          /00107901/ [Concomitant]
     Dosage: 1000 IU, QD
  8. MECLIZINE                          /00072801/ [Concomitant]
     Dosage: 25 MG, AS NECESSARY
  9. FERRLECIT                          /00023541/ [Concomitant]
     Indication: ANAEMIA
     Dosage: 125 MG, Q2WK
     Route: 042
  10. BONIVA [Concomitant]
     Dosage: UNK
  11. MVI                                /07504101/ [Concomitant]
     Dosage: UNK
  12. CALCIUM PLUS VITAMIN D [Concomitant]
     Dosage: 600 MG, BID
  13. FISH OIL [Concomitant]
     Dosage: 1000 MG, BID
  14. IRON [Concomitant]
     Indication: ANAEMIA
     Dosage: UNK
     Route: 042

REACTIONS (6)
  - Death [Fatal]
  - Acute leukaemia [Unknown]
  - White blood cell count increased [Unknown]
  - Anaemia [Unknown]
  - Thrombocytopenia [Unknown]
  - Sinusitis [Unknown]
